FAERS Safety Report 4745516-3 (Version None)
Quarter: 2005Q3

REPORT INFORMATION
  Report Type: 
  Country: None (occurrence: None)
  Receive Date: 20050815
  Receipt Date: 20050511
  Transmission Date: 20060218
  Serious: Yes (Hospitalization, Disabling)
  Sender: FDA-Public Use
  Company Number: US-MERCK-0505USA01793

PATIENT
  Age: 31 Year
  Sex: Male
  Weight: 77 kg

DRUGS (7)
  1. VIOXX [Suspect]
     Indication: GOUT
     Route: 048
     Dates: start: 20000601, end: 20040901
  2. ALEVE [Concomitant]
     Indication: ARTHRALGIA
     Route: 065
     Dates: start: 20010301
  3. FLEXERIL [Concomitant]
     Indication: BACK PAIN
     Route: 065
     Dates: start: 20010101, end: 20030101
  4. CYCLOBENZAPRINE(WEST POINT PHARMA) [Concomitant]
     Route: 065
  5. CHLORDIAZEPOXIDE [Concomitant]
     Route: 065
  6. LORAZEPAM [Concomitant]
     Route: 065
  7. FLUOXETINE [Concomitant]
     Route: 065

REACTIONS (8)
  - ATRIAL FIBRILLATION [None]
  - BACK PAIN [None]
  - CARDIAC MURMUR [None]
  - CEREBROVASCULAR ACCIDENT [None]
  - GOUT [None]
  - HYPERTENSION [None]
  - INSOMNIA [None]
  - MYOCARDIAL INFARCTION [None]
